FAERS Safety Report 17911034 (Version 3)
Quarter: 2021Q2

REPORT INFORMATION
  Report Type: Spontaneous
  Country: US (occurrence: US)
  Receive Date: 20200618
  Receipt Date: 20210622
  Transmission Date: 20210717
  Serious: Yes (Other)
  Sender: FDA-Public Use
  Company Number: US-GILEAD-2020-0473473

PATIENT
  Age: 55 Year
  Sex: Male
  Weight: 98.4 kg

DRUGS (27)
  1. CHANTIX [Concomitant]
     Active Substance: VARENICLINE TARTRATE
  2. FLUTICASONE PROPIONATE. [Concomitant]
     Active Substance: FLUTICASONE PROPIONATE
  3. SPIRIVA [Concomitant]
     Active Substance: TIOTROPIUM BROMIDE MONOHYDRATE
  4. CYCLOBENZAPRINE. [Concomitant]
     Active Substance: CYCLOBENZAPRINE
  5. LITHIUM. [Concomitant]
     Active Substance: LITHIUM
  6. HYDROCHLOROTHIAZIDE. [Concomitant]
     Active Substance: HYDROCHLOROTHIAZIDE
  7. FOLIC ACID. [Concomitant]
     Active Substance: FOLIC ACID
  8. JULUCA [Concomitant]
     Active Substance: DOLUTEGRAVIR SODIUM\RILPIVIRINE HYDROCHLORIDE
  9. PROAIR HFA [Concomitant]
     Active Substance: ALBUTEROL SULFATE
  10. LIDODERM [Concomitant]
     Active Substance: LIDOCAINE
  11. ASPIRIN [ACETYLSALICYLIC ACID] [Concomitant]
     Active Substance: ASPIRIN
  12. METHOCARBAMOL. [Concomitant]
     Active Substance: METHOCARBAMOL
  13. ATRIPLA [Suspect]
     Active Substance: EFAVIRENZ\EMTRICITABINE\TENOFOVIR DISOPROXIL FUMARATE
     Indication: HIV INFECTION
     Dosage: UNK
     Route: 048
     Dates: start: 20061120, end: 201903
  14. ACETAMINOPHEN. [Concomitant]
     Active Substance: ACETAMINOPHEN
  15. BACTRIM [Concomitant]
     Active Substance: SULFAMETHOXAZOLE\TRIMETHOPRIM
  16. HYDROCODONE [Concomitant]
     Active Substance: HYDROCODONE
  17. DULERA [Concomitant]
     Active Substance: FORMOTEROL FUMARATE DIHYDRATE\MOMETASONE FUROATE
  18. TYLENOL [Concomitant]
     Active Substance: ACETAMINOPHEN
  19. SEROQUEL [Concomitant]
     Active Substance: QUETIAPINE FUMARATE
  20. BUPROPION. [Concomitant]
     Active Substance: BUPROPION
  21. MIRTAZAPINE. [Concomitant]
     Active Substance: MIRTAZAPINE
  22. QUETIAPINE. [Concomitant]
     Active Substance: QUETIAPINE
  23. CALCITRAL [CALCIUM CARBONATE] [Concomitant]
  24. PREZCOBIX [Concomitant]
     Active Substance: COBICISTAT\DARUNAVIR ETHANOLATE
  25. FLUVIRIN [INFLUENZA VACCINE INACT SAG 3V] [Concomitant]
  26. OMEPRAZOLE. [Concomitant]
     Active Substance: OMEPRAZOLE
  27. SULINDAC. [Concomitant]
     Active Substance: SULINDAC

REACTIONS (8)
  - Chronic kidney disease [Not Recovered/Not Resolved]
  - Tooth loss [Unknown]
  - Fracture [Unknown]
  - Osteoporosis [Unknown]
  - Acute kidney injury [Unknown]
  - Emotional distress [Unknown]
  - Bone density decreased [Unknown]
  - Pain [Unknown]

NARRATIVE: CASE EVENT DATE: 2010
